FAERS Safety Report 7925857 (Version 7)
Quarter: 2013Q3

REPORT INFORMATION
  Report Type: Spontaneous
  Country: US (occurrence: US)
  Receive Date: 20110502
  Receipt Date: 20130812
  Transmission Date: 20140515
  Serious: Yes (Life-Threatening, Hospitalization, Other)
  Sender: FDA-Public Use
  Company Number: US-ASTRAZENECA-2010SE43700

PATIENT
  Age: 48 Year
  Sex: Male
  Weight: 63.5 kg

DRUGS (34)
  1. NEXIUM [Suspect]
     Indication: GASTROOESOPHAGEAL REFLUX DISEASE
     Route: 048
  2. NEXIUM [Suspect]
     Indication: GASTRIC ULCER
     Route: 048
  3. NEXIUM [Suspect]
     Indication: GASTROOESOPHAGEAL REFLUX DISEASE
     Route: 048
  4. NEXIUM [Suspect]
     Indication: HIATUS HERNIA
     Route: 048
  5. NEXIUM [Suspect]
     Indication: GASTROOESOPHAGEAL REFLUX DISEASE
     Route: 048
     Dates: start: 2009
  6. NEXIUM [Suspect]
     Indication: GASTRIC ULCER
     Route: 048
     Dates: start: 2009
  7. NEXIUM [Suspect]
     Indication: GASTROOESOPHAGEAL REFLUX DISEASE
     Route: 048
     Dates: start: 2009
  8. NEXIUM [Suspect]
     Indication: HIATUS HERNIA
     Route: 048
     Dates: start: 2009
  9. NEXIUM [Suspect]
     Indication: GASTROOESOPHAGEAL REFLUX DISEASE
     Dosage: GENERIC
     Route: 048
  10. NEXIUM [Suspect]
     Indication: GASTRIC ULCER
     Dosage: GENERIC
     Route: 048
  11. NEXIUM [Suspect]
     Indication: GASTROOESOPHAGEAL REFLUX DISEASE
     Dosage: GENERIC
     Route: 048
  12. NEXIUM [Suspect]
     Indication: HIATUS HERNIA
     Dosage: GENERIC
     Route: 048
  13. NEXIUM [Suspect]
     Indication: GASTROOESOPHAGEAL REFLUX DISEASE
     Route: 048
     Dates: end: 20130610
  14. NEXIUM [Suspect]
     Indication: GASTRIC ULCER
     Route: 048
     Dates: end: 20130610
  15. NEXIUM [Suspect]
     Indication: GASTROOESOPHAGEAL REFLUX DISEASE
     Route: 048
     Dates: end: 20130610
  16. NEXIUM [Suspect]
     Indication: HIATUS HERNIA
     Route: 048
     Dates: end: 20130610
  17. NEXIUM [Suspect]
     Indication: GASTROOESOPHAGEAL REFLUX DISEASE
     Route: 048
     Dates: end: 20130726
  18. NEXIUM [Suspect]
     Indication: GASTRIC ULCER
     Route: 048
     Dates: end: 20130726
  19. NEXIUM [Suspect]
     Indication: GASTROOESOPHAGEAL REFLUX DISEASE
     Route: 048
     Dates: end: 20130726
  20. NEXIUM [Suspect]
     Indication: HIATUS HERNIA
     Route: 048
     Dates: end: 20130726
  21. CRESTOR [Suspect]
     Indication: BLOOD CHOLESTEROL INCREASED
     Route: 048
     Dates: start: 2011
  22. LISINOPRIL [Suspect]
     Indication: BLOOD PRESSURE ABNORMAL
     Route: 048
     Dates: start: 2008
  23. NOVOLOG INSULIN [Concomitant]
     Indication: TYPE 2 DIABETES MELLITUS
     Dosage: 10 UNITS THREE TIMES A DAY
     Route: 058
     Dates: start: 2008
  24. LANTUS UNSULIN [Concomitant]
     Indication: TYPE 2 DIABETES MELLITUS
     Dosage: 20 UNITS AT NIGHT
     Route: 058
     Dates: start: 2008
  25. INHALER [Concomitant]
     Indication: CHRONIC OBSTRUCTIVE PULMONARY DISEASE
     Dosage: 1-2 PUFFS BID
     Route: 055
     Dates: start: 2010
  26. INHALER [Concomitant]
     Indication: CHRONIC OBSTRUCTIVE PULMONARY DISEASE
     Dosage: UNKOWN AS REQUIRED
     Route: 055
  27. XANAX [Concomitant]
     Indication: NERVOUS SYSTEM DISORDER
     Route: 048
     Dates: start: 2003
  28. XANAX [Concomitant]
     Indication: PANIC ATTACK
     Route: 048
     Dates: start: 2003
  29. LORCET [Concomitant]
     Indication: ARTHRITIS
     Route: 048
     Dates: start: 2003
  30. LYRICA [Concomitant]
     Indication: NERVE INJURY
     Route: 048
     Dates: start: 2011
  31. HYDROCODONE [Concomitant]
     Indication: PAIN
     Route: 048
     Dates: start: 2011
  32. HYDROCODONE [Concomitant]
     Indication: ARTHRITIS
     Route: 048
     Dates: start: 2011
  33. CARAFATE [Concomitant]
     Indication: ULCER
     Route: 048
     Dates: start: 2011
  34. BABY ASPIRIN [Concomitant]
     Indication: CARDIAC DISORDER
     Route: 048
     Dates: start: 2011

REACTIONS (20)
  - Diabetic coma [Unknown]
  - Chronic obstructive pulmonary disease [Unknown]
  - Dehydration [Not Recovered/Not Resolved]
  - Diabetic ketoacidosis [Not Recovered/Not Resolved]
  - Cerebrovascular accident [Unknown]
  - Dysphagia [Not Recovered/Not Resolved]
  - Vomiting [Not Recovered/Not Resolved]
  - Hemiparesis [Unknown]
  - Hypertension [Unknown]
  - Weight decreased [Unknown]
  - Gastrooesophageal reflux disease [Unknown]
  - Ulcer [Not Recovered/Not Resolved]
  - Hiatus hernia [Not Recovered/Not Resolved]
  - Nerve injury [Not Recovered/Not Resolved]
  - Panic attack [Not Recovered/Not Resolved]
  - Dyspepsia [Unknown]
  - Blood cholesterol increased [Not Recovered/Not Resolved]
  - Drug effect delayed [Unknown]
  - Drug dose omission [Unknown]
  - Intentional drug misuse [Unknown]
